FAERS Safety Report 24113059 (Version 1)
Quarter: 2024Q3

REPORT INFORMATION
  Report Type: Spontaneous
  Country: US (occurrence: None)
  Receive Date: 20240719
  Receipt Date: 20240719
  Transmission Date: 20241016
  Serious: No
  Sender: ASTRAZENECA
  Company Number: 2024A144960

PATIENT
  Sex: Female

DRUGS (1)
  1. BYETTA [Suspect]
     Active Substance: EXENATIDE
     Dosage: 1.2ML UNKNOWN
     Dates: start: 202404

REACTIONS (8)
  - Blood glucose decreased [Unknown]
  - Blood glucose increased [Unknown]
  - Back pain [Unknown]
  - Agitation [Unknown]
  - Device defective [Unknown]
  - Drug ineffective [Unknown]
  - Incorrect dose administered by device [Unknown]
  - Drug dose omission by device [Unknown]
